FAERS Safety Report 9930944 (Version 1)
Quarter: 2014Q1

REPORT INFORMATION
  Report Type: Report from Study
  Country: US (occurrence: US)
  Receive Date: 20140227
  Receipt Date: 20140227
  Transmission Date: 20141002
  Serious: Yes (Death)
  Sender: FDA-Public Use
  Company Number: PHEH2014US003999

PATIENT
  Age: 15 Year
  Sex: Male

DRUGS (1)
  1. TOBI PODHALER [Suspect]
     Indication: METABOLIC DISORDER
     Dosage: 112 MG, (28 DAYS ON AND 25 DAYS OFF)
     Route: 055
     Dates: start: 20130913

REACTIONS (1)
  - Death [Fatal]
